FAERS Safety Report 10418161 (Version 1)
Quarter: 2014Q2

REPORT INFORMATION
  Report Type: Spontaneous
  Country: US (occurrence: None)
  Receive Date: 20140609
  Receipt Date: 20140609
  Transmission Date: 20141212
  Serious: No
  Sender: FDA-Public Use
  Company Number: 2014TUS002517

PATIENT
  Age: 40 Year
  Sex: Female
  Weight: 75.03 kg

DRUGS (2)
  1. BRINTELLIX (VORTIOXETINE) TABLET, 20MG [Suspect]
     Indication: DEPRESSION
     Route: 048
     Dates: start: 20140210
  2. BRINTELLIX (VORTIOXETINE) TABLET, 20MG [Suspect]
     Indication: ANXIETY
     Route: 048
     Dates: start: 20140210

REACTIONS (6)
  - Hyperthyroidism [None]
  - Weight increased [None]
  - Headache [None]
  - Apathy [None]
  - Pruritus [None]
  - Flatulence [None]
